FAERS Safety Report 5727224-5 (Version None)
Quarter: 2008Q2

REPORT INFORMATION
  Report Type: 
  Country: None (occurrence: None)
  Receive Date: 20080430
  Receipt Date: 20080418
  Transmission Date: 20081010
  Serious: Yes (Hospitalization)
  Sender: FDA-Public Use
  Company Number: 2008-175791-NL

PATIENT
  Age: 17 Year
  Sex: Female

DRUGS (4)
  1. ETONOGESTREL [Suspect]
     Dosage: DF
     Dates: start: 20060914
  2. CEPHALEXIN [Concomitant]
  3. AMOXICILLIN [Concomitant]
  4. NITROFURANTOIN [Concomitant]

REACTIONS (2)
  - KIDNEY INFECTION [None]
  - VAGINAL HAEMORRHAGE [None]
